FAERS Safety Report 26175342 (Version 1)
Quarter: 2025Q4

REPORT INFORMATION
  Report Type: Spontaneous
  Country: US (occurrence: US)
  Receive Date: 20251218
  Receipt Date: 20251218
  Transmission Date: 20260117
  Serious: No
  Sender: VERTEX
  Company Number: US-VERTEX PHARMACEUTICALS-2025-021037

PATIENT
  Sex: Female

DRUGS (2)
  1. SUZETRIGINE [Suspect]
     Active Substance: SUZETRIGINE
     Indication: Pain
     Dosage: 100 MG, QD (LOADING DOSE)
     Route: 061
     Dates: start: 20251203, end: 20251203
  2. SUZETRIGINE [Suspect]
     Active Substance: SUZETRIGINE
     Dosage: 50 MG
     Route: 061
     Dates: start: 20251204, end: 20251208

REACTIONS (1)
  - Hypersensitivity [Not Recovered/Not Resolved]

NARRATIVE: CASE EVENT DATE: 20251208
